FAERS Safety Report 9347093 (Version 2)
Quarter: 2014Q3

REPORT INFORMATION
  Report Type: Spontaneous
  Country: JP (occurrence: JP)
  Receive Date: 20130613
  Receipt Date: 20140722
  Transmission Date: 20150326
  Serious: Yes (Hospitalization)
  Sender: FDA-Public Use
  Company Number: JP-GLAXOSMITHKLINE-B0898016A

PATIENT
  Age: 18 Year
  Sex: Male
  Weight: 42 kg

DRUGS (3)
  1. CELESTAMINE [Suspect]
     Active Substance: BETAMETHASONE\DEXCHLORPHENIRAMINE MALEATE
     Indication: DERMATITIS ATOPIC
     Dosage: 10MG PER DAY
     Route: 048
     Dates: start: 200910
  2. FLUTIDE DISKUS [Suspect]
     Active Substance: FLUTICASONE PROPIONATE
     Indication: ASTHMA
     Route: 045
  3. MONTELUKAST SODIUM. [Concomitant]
     Active Substance: MONTELUKAST SODIUM
     Indication: PRODUCT USED FOR UNKNOWN INDICATION
     Dosage: 10MG PER DAY
     Route: 048

REACTIONS (9)
  - Hypoxia [Recovering/Resolving]
  - Upper respiratory tract infection [Unknown]
  - Pyrexia [Recovered/Resolved]
  - Malaise [Unknown]
  - Inflammation [Unknown]
  - Nocardiosis [Recovering/Resolving]
  - White blood cell count increased [Unknown]
  - Pneumonia pneumococcal [Unknown]
  - Lung infiltration [Recovering/Resolving]

NARRATIVE: CASE EVENT DATE: 2008
